FAERS Safety Report 24377265 (Version 1)
Quarter: 2024Q3

REPORT INFORMATION
  Report Type: Spontaneous
  Country: CA (occurrence: CA)
  Receive Date: 20240930
  Receipt Date: 20240930
  Transmission Date: 20241016
  Serious: Yes (Other)
  Sender: ACCORD
  Company Number: None

PATIENT
  Age: 4 Year
  Sex: Male

DRUGS (3)
  1. MONTELUKAST [Suspect]
     Active Substance: MONTELUKAST SODIUM
     Indication: Gastroenteritis eosinophilic
     Route: 065
  2. DUPILUMAB [Suspect]
     Active Substance: DUPILUMAB
     Indication: Gastroenteritis eosinophilic
     Route: 065
  3. KETOTIFEN [Suspect]
     Active Substance: KETOTIFEN
     Indication: Gastroenteritis eosinophilic
     Route: 065

REACTIONS (5)
  - Drug ineffective [Unknown]
  - Flushing [Unknown]
  - Headache [Unknown]
  - Off label use [Unknown]
  - Somnolence [Unknown]
